FAERS Safety Report 8328521-X (Version None)
Quarter: 2012Q2

REPORT INFORMATION
  Report Type: 
  Country: None (occurrence: None)
  Receive Date: 20120502
  Receipt Date: 20120430
  Transmission Date: 20120825
  Serious: Yes (Other)
  Sender: FDA-Public Use
  Company Number: US-PFIZER INC-2012081764

PATIENT
  Sex: Female
  Weight: 78.005 kg

DRUGS (15)
  1. DIFLUCAN [Suspect]
     Dosage: 200 MG, UNK
     Route: 048
  2. FLEXERIL [Concomitant]
     Indication: MUSCLE SPASMS
     Dosage: UNK
  3. MICROZIDE [Concomitant]
     Dosage: UNK
  4. VITAMIN B-12 [Concomitant]
     Dosage: UNK
  5. ACETYLSALICYLIC ACID [Concomitant]
     Dosage: 81 MG, UNK
  6. COREG [Concomitant]
     Dosage: UNK
  7. LINAGLIPTIN [Concomitant]
     Dosage: UNK
     Route: 048
  8. CALCIUM [Concomitant]
     Dosage: UNK
  9. MAGNESIUM [Concomitant]
     Dosage: UNK, 2X/DAY
  10. VESICARE [Concomitant]
     Dosage: UNK
  11. PROTONIX [Concomitant]
     Dosage: UNK, 1X/DAY
  12. TOVIAZ [Concomitant]
     Dosage: UNK
  13. PRADAXA [Concomitant]
     Dosage: 75 MG, 2X/DAY
  14. ZOLOFT [Concomitant]
     Dosage: UNK
  15. ZOVIRAX [Concomitant]
     Dosage: UNK

REACTIONS (3)
  - FALL [None]
  - HIP FRACTURE [None]
  - CEREBROVASCULAR ACCIDENT [None]
